FAERS Safety Report 9392591 (Version 1)
Quarter: 2013Q3

REPORT INFORMATION
  Report Type: Not Available
  Country: US (occurrence: US)
  Receive Date: 20130710
  Receipt Date: 20130710
  Transmission Date: 20140515
  Serious: Yes (Hospitalization)
  Sender: FDA-Public Use
  Company Number: US-LUPIN PHARMACEUTICALS INC.-E2B_00001021

PATIENT
  Age: 52 Year
  Sex: Male
  Weight: 83.99 kg

DRUGS (4)
  1. LEVOFLOXACIN TABLETS 500 MG (LEVOFLOXACIN) [Suspect]
     Indication: BRONCHITIS
     Dates: start: 201305, end: 201305
  2. LEVOFLOXACIN [Suspect]
     Indication: CELLULITIS
  3. REMICADE [Suspect]
     Indication: PRODUCT USED FOR UNKNOWN INDICATION
     Route: 065
  4. METHOTREXATE [Suspect]
     Indication: PRODUCT USED FOR UNKNOWN INDICATION
     Route: 065

REACTIONS (3)
  - Visual impairment [Not Recovered/Not Resolved]
  - Syncope [Recovered/Resolved]
  - Road traffic accident [None]
